FAERS Safety Report 5526111-5 (Version None)
Quarter: 2007Q4

REPORT INFORMATION
  Report Type: 
  Country: None (occurrence: None)
  Receive Date: 20071120
  Receipt Date: 20071105
  Transmission Date: 20080405
  Serious: Yes (Disabling)
  Sender: FDA-Public Use
  Company Number: 2007002146

PATIENT
  Age: 54 Year
  Sex: Female

DRUGS (1)
  1. TARCEVA [Suspect]
     Dosage: (150 MG, QD,), ORAL
     Route: 048
     Dates: start: 20070115

REACTIONS (2)
  - ANXIETY [None]
  - ARTHRITIS [None]
